FAERS Safety Report 10216545 (Version 1)
Quarter: 2014Q2

REPORT INFORMATION
  Report Type: Spontaneous
  Country: GB (occurrence: GB)
  Receive Date: 20140604
  Receipt Date: 20140604
  Transmission Date: 20141212
  Serious: Yes (Other)
  Sender: FDA-Public Use
  Company Number: PHFR2014GB003940

PATIENT
  Sex: Female

DRUGS (1)
  1. VOLTAROL [Suspect]
     Dosage: 100 MG, UNK
     Route: 054
     Dates: start: 20140528

REACTIONS (2)
  - Movement disorder [Not Recovered/Not Resolved]
  - Hypoaesthesia [Not Recovered/Not Resolved]
